FAERS Safety Report 8176357-5 (Version None)
Quarter: 2012Q1

REPORT INFORMATION
  Report Type: 
  Country: None (occurrence: None)
  Receive Date: 20120227
  Receipt Date: 20120227
  Transmission Date: 20120608
  Serious: No
  Sender: FDA-Public Use
  Company Number: None

PATIENT
  Sex: Female
  Weight: 113.7621 kg

DRUGS (2)
  1. FLUOXETINE HYDROCHLORIDE [Suspect]
     Indication: BIPOLAR DISORDER
     Dosage: 40 MG 1 PO QD
     Route: 048
     Dates: start: 20020101
  2. FLUOXETINE HYDROCHLORIDE [Suspect]
     Indication: MAJOR DEPRESSION
     Dosage: 40 MG 1 PO QD
     Route: 048
     Dates: start: 20020101

REACTIONS (3)
  - PRODUCT SUBSTITUTION ISSUE [None]
  - DRUG INEFFECTIVE [None]
  - TREATMENT FAILURE [None]
